FAERS Safety Report 19932668 (Version 1)
Quarter: 2021Q4

REPORT INFORMATION
  Report Type: Spontaneous
  Country: TR (occurrence: TR)
  Receive Date: 20211008
  Receipt Date: 20211008
  Transmission Date: 20220303
  Serious: Yes (Life-Threatening, Hospitalization, Other)
  Sender: FDA-Public Use
  Company Number: TR-SA-2021SA332749

PATIENT
  Age: 64 Year
  Sex: Male

DRUGS (9)
  1. TAXOTERE [Suspect]
     Active Substance: DOCETAXEL
     Indication: Ureteric cancer
     Dosage: 75 MG/M2
     Route: 042
     Dates: start: 20170306, end: 20170327
  2. METOCLOPRAMIDE HYDROCHLORIDE [Suspect]
     Active Substance: METOCLOPRAMIDE HYDROCHLORIDE
     Dosage: UNK
     Dates: start: 2016
  3. BUDESONIDE [Suspect]
     Active Substance: BUDESONIDE
     Dosage: UNK
     Dates: start: 20170403, end: 20170405
  4. PANTOPRAZOLE SODIUM [Suspect]
     Active Substance: PANTOPRAZOLE SODIUM
     Dosage: UNK
     Dates: start: 2016
  5. IPRATROPIUM BROMIDE [Suspect]
     Active Substance: IPRATROPIUM BROMIDE
     Dosage: UNK
     Dates: start: 20170403, end: 20170405
  6. ISOTONIC SODIUM CHLORIDE SOLUTION [Suspect]
     Active Substance: SODIUM CHLORIDE
     Dosage: UNK
     Dates: start: 20170403, end: 20170405
  7. CARBOPLATIN [Concomitant]
     Active Substance: CARBOPLATIN
     Indication: Ureteric cancer
     Dosage: UNK
     Dates: start: 20161110, end: 20161212
  8. GEMCITABINE [Concomitant]
     Active Substance: GEMCITABINE
     Indication: Ureteric cancer
     Dosage: UNK
     Dates: start: 20160709, end: 20161212
  9. CISPLATIN [Concomitant]
     Active Substance: CISPLATIN
     Indication: Ureteric cancer
     Dosage: UNK
     Dates: start: 20160719, end: 20161013

REACTIONS (19)
  - Pericardial effusion [Recovered/Resolved]
  - Ureteric cancer [Not Recovered/Not Resolved]
  - Activated partial thromboplastin time shortened [Unknown]
  - Fibrin D dimer increased [Unknown]
  - C-reactive protein increased [Unknown]
  - Protein total decreased [Unknown]
  - Blood albumin decreased [Unknown]
  - Blood creatine phosphokinase decreased [Unknown]
  - Blood creatine phosphokinase MB increased [Unknown]
  - Blood sodium decreased [Unknown]
  - Fluid retention [Unknown]
  - Cough [Unknown]
  - Dyspnoea [Not Recovered/Not Resolved]
  - White blood cell count decreased [Unknown]
  - Red blood cell count decreased [Unknown]
  - Haemoglobin decreased [Unknown]
  - Fatigue [Not Recovered/Not Resolved]
  - Decreased appetite [Not Recovered/Not Resolved]
  - Off label use [Unknown]

NARRATIVE: CASE EVENT DATE: 20160101
